FAERS Safety Report 9637097 (Version 2)
Quarter: 2014Q1

REPORT INFORMATION
  Report Type: Spontaneous
  Country: US (occurrence: US)
  Receive Date: 20131022
  Receipt Date: 20140220
  Transmission Date: 20141002
  Serious: Yes (Other)
  Sender: FDA-Public Use
  Company Number: US-BRISTOL-MYERS SQUIBB COMPANY-19549542

PATIENT
  Age: 63 Year
  Sex: Female

DRUGS (9)
  1. BYETTA [Suspect]
     Indication: TYPE 2 DIABETES MELLITUS
     Dates: start: 20090305, end: 201002
  2. VICTOZA [Suspect]
     Indication: TYPE 2 DIABETES MELLITUS
     Dates: start: 20110606, end: 201109
  3. DOXYCYCLINE HYCLATE [Concomitant]
  4. AVANDIA [Concomitant]
  5. METFORMIN HCL [Concomitant]
  6. GLIPIZIDE [Concomitant]
  7. SULINDAC [Concomitant]
  8. LEVOXYL [Concomitant]
  9. LISINOPRIL [Concomitant]

REACTIONS (1)
  - Adenocarcinoma pancreas [Unknown]
